FAERS Safety Report 10313378 (Version 1)
Quarter: 2014Q3

REPORT INFORMATION
  Report Type: Report from Study
  Country: GR (occurrence: None)
  Receive Date: 20140716
  Receipt Date: 20140716
  Transmission Date: 20150326
  Serious: Yes (Other)
  Sender: FDA-Public Use
  Company Number: CUB-11-03-001

PATIENT
  Age: 3 Year
  Sex: Female
  Weight: 28 kg

DRUGS (1)
  1. VANCOMYCIN [Suspect]
     Active Substance: VANCOMYCIN
     Dosage: 15 MG/KG/DOSE (10-15 MG/KG/DOSE) PER STUDY PROTOCOL ? (1 IN 6 HR), INTRAVENOUS (NOT OTHERWISE SPECIFIED)
     Route: 042

REACTIONS (4)
  - Red man syndrome [None]
  - Hypersensitivity [None]
  - Pruritus [None]
  - Infusion related reaction [None]

NARRATIVE: CASE EVENT DATE: 20140616
